FAERS Safety Report 16337149 (Version 1)
Quarter: 2019Q2

REPORT INFORMATION
  Report Type: Spontaneous
  Country: US (occurrence: US)
  Receive Date: 20190521
  Receipt Date: 20190521
  Transmission Date: 20190711
  Serious: No
  Sender: FDA-Public Use
  Company Number: US-PFIZER INC-2019212446

PATIENT
  Age: 10 Year
  Sex: Male
  Weight: 36.28 kg

DRUGS (3)
  1. SYNTHROID [Concomitant]
     Active Substance: LEVOTHYROXINE SODIUM
     Dosage: 100 UG, UNK
  2. TESTOSTERONE. [Concomitant]
     Active Substance: TESTOSTERONE
     Dosage: UNK [1.25G-1.62 GEL PACKET]
  3. GENOTROPIN [Suspect]
     Active Substance: SOMATROPIN
     Indication: GROWTH HORMONE DEFICIENCY
     Dosage: 0.9 MG, DAILY
     Route: 058

REACTIONS (1)
  - Pain [Recovering/Resolving]

NARRATIVE: CASE EVENT DATE: 20190513
